FAERS Safety Report 7026590-0 (Version None)
Quarter: 2010Q4

REPORT INFORMATION
  Report Type: 
  Country: None (occurrence: None)
  Receive Date: 20101004
  Receipt Date: 20100927
  Transmission Date: 20110411
  Serious: Yes (Hospitalization)
  Sender: FDA-Public Use
  Company Number: US-SANOFI-AVENTIS-2010SA058727

PATIENT
  Age: 72 Year
  Sex: Male

DRUGS (1)
  1. JEVTANA KIT [Suspect]
     Route: 041

REACTIONS (3)
  - FLUID OVERLOAD [None]
  - PULMONARY HYPERTENSION [None]
  - RIGHT VENTRICULAR FAILURE [None]
